FAERS Safety Report 5196096-2 (Version None)
Quarter: 2006Q4

REPORT INFORMATION
  Report Type: 
  Country: None (occurrence: None)
  Receive Date: 20061226
  Receipt Date: 20061218
  Transmission Date: 20070319
  Serious: Yes (Hospitalization, Other)
  Sender: FDA-Public Use
  Company Number: HQWYE948213DEC06

PATIENT
  Sex: Female

DRUGS (1)
  1. CORDARONE [Suspect]
     Route: 048
     Dates: start: 20061201

REACTIONS (2)
  - DRUG INEFFECTIVE [None]
  - TACHYCARDIA [None]
